FAERS Safety Report 8086125-0 (Version None)
Quarter: 2012Q1

REPORT INFORMATION
  Report Type: 
  Country: None (occurrence: None)
  Receive Date: 20120128
  Receipt Date: 20110414
  Transmission Date: 20120608
  Serious: No
  Sender: FDA-Public Use
  Company Number: US-ABBOTT-11P-163-0719049-00

PATIENT
  Age: 35 Year
  Sex: Female

DRUGS (6)
  1. CELEXA [Concomitant]
     Indication: DEPRESSION
     Dosage: 40MG DAILY
  2. HUMIRA [Suspect]
     Indication: CROHN'S DISEASE
     Dosage: LOADING DOSE DAY 1
     Dates: start: 20110325, end: 20110325
  3. ONSTRAN [Concomitant]
     Indication: NAUSEA
     Dosage: WITH GLEEVEC DAILY
  4. GLEEVEC [Concomitant]
     Indication: LEUKAEMIA
     Dosage: 1.25MG-FOUR TABS DAILY
  5. HUMIRA [Suspect]
     Dosage: SECONDARY LOADING DOSE
     Dates: start: 20110409, end: 20110409
  6. LIALDA [Concomitant]
     Indication: COLITIS ULCERATIVE
     Dosage: 1.25MG-FOUR TABS DAILY

REACTIONS (1)
  - RASH [None]
